FAERS Safety Report 13961567 (Version 3)
Quarter: 2017Q4

REPORT INFORMATION
  Report Type: Spontaneous
  Country: CA (occurrence: CA)
  Receive Date: 20170912
  Receipt Date: 20171130
  Transmission Date: 20180320
  Serious: Yes (Other)
  Sender: FDA-Public Use
  Company Number: CA-CELLTRION HEALTHCARE JAPAN K.K.-2017CA010133

PATIENT

DRUGS (4)
  1. INFLECTRA [Suspect]
     Active Substance: INFLIXIMAB-DYYB
     Indication: COLITIS ULCERATIVE
     Dosage: 350 MG, CYCLIC (MAINTENANCE EVERY 8 WEEKS)
     Route: 042
     Dates: start: 20170623
  2. PREDNISONE. [Concomitant]
     Active Substance: PREDNISONE
     Dosage: 40 MG, DAILY
     Route: 065
  3. INFLECTRA [Suspect]
     Active Substance: INFLIXIMAB-DYYB
     Dosage: 400 MG, CYCLIC THEN EVERY 8 WEEKS
     Route: 042
     Dates: end: 20171003
  4. SALOFALK                           /00747601/ [Concomitant]
     Active Substance: MESALAMINE
     Dosage: 4 G, DAILY
     Route: 065

REACTIONS (8)
  - Drug effect incomplete [Unknown]
  - Nausea [Recovered/Resolved]
  - Emotional disorder [Not Recovered/Not Resolved]
  - Flushing [Recovered/Resolved]
  - Diarrhoea [Unknown]
  - Chest discomfort [Recovered/Resolved]
  - Clostridium difficile infection [Unknown]
  - Abdominal pain [Unknown]

NARRATIVE: CASE EVENT DATE: 201707
